FAERS Safety Report 9019109 (Version 1)
Quarter: 2013Q1

REPORT INFORMATION
  Report Type: Report from Study
  Country: CA (occurrence: CA)
  Receive Date: 20130118
  Receipt Date: 20130118
  Transmission Date: 20140127
  Serious: Yes (Other)
  Sender: FDA-Public Use
  Company Number: CA-JNJFOC-20130106204

PATIENT
  Sex: Male

DRUGS (6)
  1. SIMPONI [Suspect]
     Indication: RHEUMATOID ARTHRITIS
     Dates: start: 20120707
  2. METHOTREXATE [Concomitant]
  3. EURO FOLIC [Concomitant]
  4. BISOPROLOL [Concomitant]
  5. PANTOPRAZOLE [Concomitant]
  6. INNOHEP [Concomitant]

REACTIONS (1)
  - Pneumonia [Unknown]
